FAERS Safety Report 5257682-4 (Version None)
Quarter: 2007Q1

REPORT INFORMATION
  Report Type: 
  Country: None (occurrence: None)
  Receive Date: 20070307
  Receipt Date: 20070228
  Transmission Date: 20070707
  Serious: Yes (Death)
  Sender: FDA-Public Use
  Company Number: 2006UW21564

PATIENT
  Sex: Male
  Weight: 84.1 kg

DRUGS (5)
  1. SEROQUEL [Suspect]
     Indication: HALLUCINATION
     Route: 048
     Dates: start: 20031101, end: 20040801
  2. SEROQUEL [Suspect]
     Route: 048
     Dates: start: 20050401, end: 20050701
  3. ABILIFY [Concomitant]
     Dates: start: 20040201, end: 20040501
  4. RISPERDAL [Concomitant]
     Dates: start: 20050401, end: 20050501
  5. EXPELAN [Concomitant]
     Dates: start: 20031101, end: 20040801

REACTIONS (4)
  - CHEST PAIN [None]
  - DEATH [None]
  - DIABETES MELLITUS [None]
  - HIP FRACTURE [None]
